FAERS Safety Report 9435421 (Version 2)
Quarter: 2013Q3

REPORT INFORMATION
  Report Type: Spontaneous
  Country: GB (occurrence: GB)
  Receive Date: 20130801
  Receipt Date: 20130911
  Transmission Date: 20140515
  Serious: Yes (Hospitalization, Other)
  Sender: FDA-Public Use
  Company Number: GB-ROCHE-1235685

PATIENT
  Sex: Female

DRUGS (1)
  1. HERCEPTIN [Suspect]
     Indication: PRODUCT USED FOR UNKNOWN INDICATION
     Dosage: CYCLE 10 DOSE 738MG?CYCLE 12
     Route: 065

REACTIONS (9)
  - Asthma [Unknown]
  - Pain in extremity [Unknown]
  - Spinal pain [Unknown]
  - Dry skin [Unknown]
  - Lethargy [Unknown]
  - Insomnia [Unknown]
  - Pain [Unknown]
  - Pain in extremity [Unknown]
  - Back pain [Unknown]
